FAERS Safety Report 13626256 (Version 1)
Quarter: 2017Q2

REPORT INFORMATION
  Report Type: Spontaneous
  Country: US (occurrence: US)
  Receive Date: 20170531
  Receipt Date: 20170531
  Transmission Date: 20170830
  Serious: Yes (Hospitalization)
  Sender: FDA-Public Use
  Company Number: US-ASTELLAS-1316886

PATIENT
  Sex: Female

DRUGS (7)
  1. PROTONIX [Concomitant]
     Active Substance: PANTOPRAZOLE SODIUM
     Route: 042
  2. RITALIN [Concomitant]
     Active Substance: METHYLPHENIDATE HYDROCHLORIDE
  3. TARCEVA [Suspect]
     Active Substance: ERLOTINIB HYDROCHLORIDE
     Dosage: 1 TAB ALTERNATE WITH 2 TABS DAILY.
     Route: 048
     Dates: start: 20131113
  4. TARCEVA [Suspect]
     Active Substance: ERLOTINIB HYDROCHLORIDE
     Dosage: 50 MG/ 25 MG ALTERNATING DOSES
     Route: 048
     Dates: start: 20131107
  5. SINEMET [Concomitant]
     Active Substance: CARBIDOPA\LEVODOPA
  6. EXELON [Concomitant]
     Active Substance: RIVASTIGMINE TARTRATE
     Dosage: PATCH
     Route: 065
  7. TARCEVA [Suspect]
     Active Substance: ERLOTINIB HYDROCHLORIDE
     Indication: BREAST CANCER
     Route: 048
     Dates: start: 20131108

REACTIONS (3)
  - Cerebrovascular accident [Unknown]
  - Rash [Recovered/Resolved]
  - Urinary tract infection [Recovered/Resolved]
